FAERS Safety Report 5372078-2 (Version None)
Quarter: 2007Q2

REPORT INFORMATION
  Report Type: 
  Country: None (occurrence: None)
  Receive Date: 20070625
  Receipt Date: 20070607
  Transmission Date: 20071010
  Serious: Yes (Hospitalization)
  Sender: FDA-Public Use
  Company Number: DSA_29849_2007

PATIENT
  Sex: Male

DRUGS (4)
  1. HERBESSER (HERBESSER) (NOT SPECIFIED) [Suspect]
     Indication: HYPERTENSION
     Dosage: (100 MG QD ORAL)
     Route: 048
     Dates: start: 20070408
  2. BLOPRESS (BLOPRESS) (NOT SPECIFIED) [Suspect]
     Dosage: (ORAL)
     Route: 048
  3. KERLONG (KERLONG) [Suspect]
     Indication: HYPERTENSION
     Dosage: (ORAL)
     Route: 048
  4. ADALAT [Suspect]
     Dosage: (ORAL)
     Route: 048

REACTIONS (8)
  - BRADYCARDIA [None]
  - DIZZINESS [None]
  - DRUG CLEARANCE DECREASED [None]
  - DRUG LEVEL INCREASED [None]
  - FATIGUE [None]
  - HYPOTENSION [None]
  - SHOCK [None]
  - TREATMENT NONCOMPLIANCE [None]
